FAERS Safety Report 16068846 (Version 2)
Quarter: 2019Q1

REPORT INFORMATION
  Report Type: Report from Study
  Country: US (occurrence: US)
  Receive Date: 20190313
  Receipt Date: 20190318
  Transmission Date: 20190418
  Serious: Yes (Hospitalization, Other)
  Sender: FDA-Public Use
  Company Number: US-SHIRE-US201907903

PATIENT
  Age: 59 Year
  Sex: Female
  Weight: 50.34 kg

DRUGS (1)
  1. GATTEX [Suspect]
     Active Substance: TEDUGLUTIDE\WATER
     Indication: SHORT-BOWEL SYNDROME
     Dosage: 0.25 MILLILITER, 1X/DAY:QD
     Route: 058
     Dates: start: 20180907

REACTIONS (3)
  - Cervical vertebral fracture [Unknown]
  - Vascular device infection [Unknown]
  - Osteomyelitis [Unknown]

NARRATIVE: CASE EVENT DATE: 20190301
